FAERS Safety Report 5324673-4 (Version None)
Quarter: 2007Q2

REPORT INFORMATION
  Report Type: 
  Country: None (occurrence: None)
  Receive Date: 20070509
  Receipt Date: 20070503
  Transmission Date: 20071010
  Serious: Yes (Hospitalization, Other)
  Sender: FDA-Public Use
  Company Number: 2007SP008000

PATIENT
  Age: 27 Year
  Sex: Female

DRUGS (2)
  1. DIPROSPAN (BETAMETHASONE SODIUM PHOSPHATE/DIPROPIONATE) (BETAMETHASONE [Suspect]
     Indication: DERMATITIS ALLERGIC
     Dosage: 2 MG
     Dates: start: 20070422, end: 20070422
  2. PARAMINE [Concomitant]

REACTIONS (6)
  - ANAPHYLACTIC SHOCK [None]
  - ARTHRALGIA [None]
  - HEADACHE [None]
  - HYPERGLYCAEMIA [None]
  - HYPOKALAEMIA [None]
  - SYNCOPE [None]
